FAERS Safety Report 17556012 (Version 1)
Quarter: 2020Q1

REPORT INFORMATION
  Report Type: Spontaneous
  Country: US (occurrence: US)
  Receive Date: 20200310
  Receipt Date: 20200310
  Transmission Date: 20200409
  Serious: No
  Sender: FDA-Public Use
  Company Number: None

PATIENT
  Age: 3 Month

DRUGS (1)
  1. CLONIDINE 100MCG/ML SUSPENSION [Suspect]
     Active Substance: CLONIDINE

REACTIONS (3)
  - Syringe issue [None]
  - Accidental overdose [None]
  - Incorrect dose administered [None]
